FAERS Safety Report 24702587 (Version 1)
Quarter: 2024Q4

REPORT INFORMATION
  Report Type: Spontaneous
  Country: DE (occurrence: DE)
  Receive Date: 20241205
  Receipt Date: 20241205
  Transmission Date: 20250115
  Serious: Yes (Other)
  Sender: BAUSCH AND LOMB
  Company Number: DE-LEO Pharma-375445

PATIENT
  Age: 66 Year
  Sex: Male

DRUGS (1)
  1. BRODALUMAB [Suspect]
     Active Substance: BRODALUMAB
     Indication: Psoriasis
     Dosage: PSOLOGY INFORMATION: NO INFORMATION REPORTED.
     Route: 065

REACTIONS (1)
  - Prostate cancer [Unknown]
